FAERS Safety Report 7416625-5 (Version None)
Quarter: 2011Q2

REPORT INFORMATION
  Report Type: 
  Country: None (occurrence: None)
  Receive Date: 20110415
  Receipt Date: 20110406
  Transmission Date: 20111010
  Serious: No
  Sender: FDA-Public Use
  Company Number: US-BIOGENIDEC-2010BI009344

PATIENT
  Age: 46 Year
  Sex: Male

DRUGS (1)
  1. TYSABRI [Suspect]
     Indication: MULTIPLE SCLEROSIS
     Route: 042
     Dates: start: 20100204, end: 20100305

REACTIONS (9)
  - RASH GENERALISED [None]
  - HYPERSENSITIVITY [None]
  - EYE SWELLING [None]
  - DEPRESSION [None]
  - MEMORY IMPAIRMENT [None]
  - EYE DISORDER [None]
  - FATIGUE [None]
  - LIP SWELLING [None]
  - SWOLLEN TONGUE [None]
